FAERS Safety Report 6983131-1 (Version None)
Quarter: 2010Q3

REPORT INFORMATION
  Report Type: 
  Country: None (occurrence: None)
  Receive Date: 20100914
  Receipt Date: 20100603
  Transmission Date: 20110219
  Serious: Yes (Other)
  Sender: FDA-Public Use
  Company Number: US-PFIZER INC-2010070600

PATIENT
  Sex: Female
  Weight: 138.32 kg

DRUGS (3)
  1. LYRICA [Suspect]
     Indication: FIBROMYALGIA
     Dosage: UNK
     Route: 048
     Dates: start: 20050101, end: 20050101
  2. IBUPROFEN [Concomitant]
     Indication: BACK PAIN
     Dosage: UNK
  3. SOMA [Concomitant]
     Indication: MUSCLE RELAXANT THERAPY
     Dosage: UNK

REACTIONS (4)
  - DRUG INEFFECTIVE [None]
  - DRY EYE [None]
  - MIGRAINE [None]
  - VISUAL IMPAIRMENT [None]
